FAERS Safety Report 4339951-5 (Version None)
Quarter: 2004Q2

REPORT INFORMATION
  Report Type: 
  Country: None (occurrence: None)
  Receive Date: 20040416
  Receipt Date: 20040405
  Transmission Date: 20050107
  Serious: Yes (Hospitalization)
  Sender: FDA-Public Use
  Company Number: DE-GLAXOSMITHKLINE-D0043541A

PATIENT
  Age: 76 Year
  Sex: Female
  Weight: 75 kg

DRUGS (4)
  1. AVANDIA [Suspect]
     Indication: BLOOD GLUCOSE INCREASED
     Dosage: 4MG THREE TIMES PER DAY
     Route: 048
     Dates: start: 20031106, end: 20040208
  2. INSULIN [Concomitant]
     Indication: INSULIN-REQUIRING TYPE II DIABETES MELLITUS
     Dosage: 12UNIT PER DAY
     Route: 042
  3. GLUCOPHAGE [Concomitant]
     Dosage: 850MG THREE TIMES PER DAY
     Route: 048
  4. VERAPAMIL [Concomitant]
     Dosage: 80MG THREE TIMES PER DAY
     Route: 048

REACTIONS (12)
  - ARTHRALGIA [None]
  - CARDIAC FAILURE [None]
  - CORONARY ARTERY STENOSIS [None]
  - DYSPNOEA EXERTIONAL [None]
  - ECHOCARDIOGRAM ABNORMAL [None]
  - HAEMANGIOMA [None]
  - HYPERTONIA [None]
  - NAUSEA [None]
  - OEDEMA [None]
  - OVERDOSE [None]
  - VOMITING [None]
  - WEIGHT INCREASED [None]
